FAERS Safety Report 11099796 (Version 1)
Quarter: 2015Q2

REPORT INFORMATION
  Report Type: Spontaneous
  Country: GF (occurrence: GF)
  Receive Date: 20150508
  Receipt Date: 20150508
  Transmission Date: 20150821
  Serious: Yes (Other)
  Sender: FDA-Public Use
  Company Number: GF-PFIZER INC-2015156227

PATIENT
  Age: 51 Year
  Sex: Male

DRUGS (5)
  1. ESPERAL [Suspect]
     Active Substance: DISULFIRAM
     Indication: ALCOHOL ABUSE
     Dosage: 250 MG, 1X/DAY
     Route: 048
     Dates: start: 201208, end: 2015
  2. CRESTOR [Suspect]
     Active Substance: ROSUVASTATIN CALCIUM
     Dosage: 5 MG, 1X/DAY
     Route: 048
  3. ATENOLOL. [Suspect]
     Active Substance: ATENOLOL
     Dosage: 50 MG, 1X/DAY
     Route: 048
  4. KARDEGIC [Suspect]
     Active Substance: ASPIRIN LYSINE
     Dosage: 75 MG, 1X/DAY
     Route: 048
  5. ODRIK [Suspect]
     Active Substance: TRANDOLAPRIL
     Dosage: 0.5 MG, 1X/DAY
     Route: 048

REACTIONS (1)
  - Optic neuritis [Not Recovered/Not Resolved]

NARRATIVE: CASE EVENT DATE: 201412
